FAERS Safety Report 7226541-X (Version None)
Quarter: 2011Q1

REPORT INFORMATION
  Report Type: 
  Country: None (occurrence: None)
  Receive Date: 20110105
  Receipt Date: 20101222
  Transmission Date: 20110831
  Serious: Yes (Death)
  Sender: FDA-Public Use
  Company Number: 2010AC000281

PATIENT
  Age: 82 Year
  Sex: Female
  Weight: 52.1 kg

DRUGS (16)
  1. PROTONIX [Concomitant]
  2. ATROPINE [Concomitant]
  3. DOBUTAMINE HCL [Concomitant]
  4. SPIRIVA [Concomitant]
  5. DOPRAMINE [Concomitant]
  6. POTASSIUM [Concomitant]
  7. IV FLUIDS [Concomitant]
  8. PLAVIX [Concomitant]
  9. DIGIBIND [Concomitant]
  10. AMIODARONE [Concomitant]
  11. CIPRO [Concomitant]
  12. ATIVAN [Concomitant]
  13. DIGOXIN [Suspect]
     Indication: PRODUCT USED FOR UNKNOWN INDICATION
     Dosage: 0.125 MG, QD; PO
     Route: 048
     Dates: start: 20080328, end: 20080401
  14. SIMVASTATIN [Concomitant]
  15. FUROSEMIDE [Concomitant]
  16. MORPHINE [Concomitant]

REACTIONS (35)
  - HYDROCEPHALUS [None]
  - HYPOTENSION [None]
  - DISCOMFORT [None]
  - URINARY TRACT INFECTION [None]
  - CARDIAC ARREST [None]
  - HYPERTENSION [None]
  - CHEYNE-STOKES RESPIRATION [None]
  - HEART RATE DECREASED [None]
  - BLOOD POTASSIUM DECREASED [None]
  - VENTRICULAR TACHYCARDIA [None]
  - MULTIPLE INJURIES [None]
  - DIARRHOEA [None]
  - DECREASED APPETITE [None]
  - PAIN [None]
  - MENTAL DISORDER [None]
  - ENCEPHALOMALACIA [None]
  - BLOOD UREA INCREASED [None]
  - RESTLESSNESS [None]
  - DEHYDRATION [None]
  - VENTRICULAR FIBRILLATION [None]
  - TOXICITY TO VARIOUS AGENTS [None]
  - CEREBRAL ISCHAEMIA [None]
  - ATRIOVENTRICULAR DISSOCIATION [None]
  - DEPRESSED LEVEL OF CONSCIOUSNESS [None]
  - ABDOMINAL PAIN UPPER [None]
  - HEADACHE [None]
  - HEART RATE IRREGULAR [None]
  - COMA [None]
  - TERMINAL STATE [None]
  - ACUTE MYOCARDIAL INFARCTION [None]
  - CEREBRAL SMALL VESSEL ISCHAEMIC DISEASE [None]
  - RENAL FAILURE [None]
  - TRANSIENT ISCHAEMIC ATTACK [None]
  - CEREBROVASCULAR ACCIDENT [None]
  - MENTAL STATUS CHANGES [None]
